FAERS Safety Report 8411401-9 (Version None)
Quarter: 2012Q2

REPORT INFORMATION
  Report Type: 
  Country: None (occurrence: None)
  Receive Date: 20120531
  Receipt Date: 20120531
  Transmission Date: 20120825
  Serious: Yes (Other)
  Sender: FDA-Public Use
  Company Number: None

PATIENT
  Sex: Male
  Weight: 83.9154 kg

DRUGS (1)
  1. HALDOL [Suspect]
     Indication: BIPOLAR I DISORDER
     Dosage: 5 MG DAILY
     Dates: start: 19890101, end: 19940101

REACTIONS (7)
  - ASTHENIA [None]
  - INSOMNIA [None]
  - WITHDRAWAL SYNDROME [None]
  - SUICIDAL IDEATION [None]
  - NERVOUS SYSTEM DISORDER [None]
  - DEPRESSION [None]
  - LOSS OF LIBIDO [None]
